FAERS Safety Report 7017706 (Version 4)
Quarter: 2012Q4

REPORT INFORMATION
  Report Type: 
  Country: GB (occurrence: GB)
  Receive Date: 20090611
  Receipt Date: 20120928
  Transmission Date: 20130627
  Serious: Yes (Disabling, Other)
  Sender: FDA-Public Use
  Company Number: GB-ABBOTT-09P-167-0578982-00

PATIENT
  Age: 50 Year
  Sex: Female
  Weight: 65 kg

DRUGS (5)
  1. HUMIRA [Suspect]
     Indication: RHEUMATOID ARTHRITIS
     Route: 058
     Dates: start: 20070313, end: 20090602
  2. METHOTREXATE [Concomitant]
     Indication: RHEUMATOID ARTHRITIS
     Route: 048
     Dates: start: 2001
  3. FOLIC ACID [Concomitant]
     Indication: RHEUMATOID ARTHRITIS
     Route: 048
  4. LODINE [Concomitant]
     Indication: RHEUMATOID ARTHRITIS
     Dates: start: 2001
  5. LODINE SR [Concomitant]
     Indication: RHEUMATOID ARTHRITIS

REACTIONS (3)
  - Sensory disturbance [Not Recovered/Not Resolved]
  - Demyelination [Not Recovered/Not Resolved]
  - Sensory disturbance [Unknown]
